FAERS Safety Report 4521579-5 (Version None)
Quarter: 2004Q4

REPORT INFORMATION
  Report Type: 
  Country: None (occurrence: None)
  Receive Date: 20041208
  Receipt Date: 20041208
  Transmission Date: 20050328
  Serious: No
  Sender: FDA-Public Use
  Company Number: None

PATIENT
  Age: 37 Year
  Sex: Female
  Weight: 63 kg

DRUGS (1)
  1. CETACAINE SPRAY [Suspect]
     Indication: PHARYNGOLARYNGEAL PAIN
     Dosage: REPEATED DOSES ORAL
     Route: 048
     Dates: start: 20041110, end: 20041111

REACTIONS (3)
  - HYPOXIA [None]
  - SELF-MEDICATION [None]
  - SKIN DISCOLOURATION [None]
